FAERS Safety Report 5634441-1 (Version None)
Quarter: 2008Q1

REPORT INFORMATION
  Report Type: 
  Country: None (occurrence: None)
  Receive Date: 20080222
  Receipt Date: 20080211
  Transmission Date: 20080703
  Serious: Yes (Other)
  Sender: FDA-Public Use
  Company Number: US-ASTRAZENECA-2006UW11770

PATIENT
  Age: 23 Year
  Sex: Female
  Weight: 106.8 kg

DRUGS (13)
  1. SEROQUEL [Suspect]
     Indication: DEPRESSION
     Dosage: 25 MG, 100 MG
     Route: 048
     Dates: start: 20040610, end: 20071008
  2. SEROQUEL [Suspect]
     Indication: INSOMNIA
     Dosage: 25 MG, 100 MG
     Route: 048
     Dates: start: 20040610, end: 20071008
  3. SEROQUEL [Suspect]
     Route: 048
     Dates: start: 20040802, end: 20061001
  4. SEROQUEL [Suspect]
     Route: 048
     Dates: start: 20040802, end: 20061001
  5. PAXIL [Concomitant]
  6. LEXAPRO [Concomitant]
     Dates: start: 20030301, end: 20040201
  7. CELEXA [Concomitant]
     Dates: start: 19990801, end: 20021101
  8. PROZAC [Concomitant]
     Dates: start: 20001001, end: 20001101
  9. LORAZEPAM [Concomitant]
     Dates: start: 19950101, end: 20070101
  10. AMITRIPTYLINE HCL [Concomitant]
     Dates: start: 19950901, end: 20001001
  11. TRAZODONE HCL [Concomitant]
     Dates: start: 20021001, end: 20021201
  12. WELLBUTRIN [Concomitant]
     Dates: start: 20000101
  13. PHENTERMINE [Concomitant]
     Dates: start: 19950801, end: 19970601

REACTIONS (9)
  - BACK DISORDER [None]
  - BIPOLAR DISORDER [None]
  - DEPRESSION [None]
  - DIABETES MELLITUS [None]
  - DIABETIC KETOACIDOSIS [None]
  - GESTATIONAL DIABETES [None]
  - GLYCOSURIA [None]
  - HYPERGLYCAEMIA [None]
  - OBESITY [None]
